FAERS Safety Report 16790586 (Version 1)
Quarter: 2019Q3

REPORT INFORMATION
  Report Type: Spontaneous
  Country: CN (occurrence: CN)
  Receive Date: 20190910
  Receipt Date: 20190910
  Transmission Date: 20191005
  Serious: Yes (Other)
  Sender: FDA-Public Use
  Company Number: CN-PFIZER INC-2019368448

PATIENT
  Age: 80 Year
  Sex: Male

DRUGS (2)
  1. PALBOCICLIB [Suspect]
     Active Substance: PALBOCICLIB
     Indication: NASOPHARYNGEAL CANCER
     Dosage: 125 MG, DAILY (FOR 14 CONSECUTIVE DAYS FOLLOWED BY 7 DAYS OFF THERAPY; COMPLETE CYCLE OF 21 DAYS)
     Dates: start: 20170612
  2. NIMOTUZUMAB [Concomitant]
     Active Substance: NIMOTUZUMAB
     Indication: NASOPHARYNGEAL CANCER
     Dosage: UNK

REACTIONS (5)
  - Thrombocytopenia [Recovered/Resolved]
  - Product use in unapproved indication [Unknown]
  - Neutropenia [Recovered/Resolved]
  - Off label use [Unknown]
  - Bone marrow failure [Recovering/Resolving]
